FAERS Safety Report 12973590 (Version 1)
Quarter: 2016Q4

REPORT INFORMATION
  Report Type: Spontaneous
  Country: IL (occurrence: IL)
  Receive Date: 20161124
  Receipt Date: 20161124
  Transmission Date: 20170207
  Serious: Yes (Death, Life-Threatening, Hospitalization)
  Sender: FDA-Public Use
  Company Number: IL-UNITED THERAPEUTICS-UNT-2016-017934

PATIENT
  Age: 38 Year
  Sex: Female

DRUGS (1)
  1. REMODULIN [Suspect]
     Active Substance: TREPROSTINIL
     Indication: PULMONARY ARTERIAL HYPERTENSION
     Dosage: 0.016 ?G/KG, CONTINUING
     Route: 041
     Dates: start: 20160529

REACTIONS (6)
  - Wrong technique in product usage process [Unknown]
  - Haemoglobin decreased [Unknown]
  - Malaise [Unknown]
  - Loss of consciousness [Unknown]
  - Sepsis [Fatal]
  - Oxygen consumption increased [Unknown]

NARRATIVE: CASE EVENT DATE: 2016
